FAERS Safety Report 19001704 (Version 1)
Quarter: 2021Q1

REPORT INFORMATION
  Report Type: Spontaneous
  Country: US (occurrence: US)
  Receive Date: 20210312
  Receipt Date: 20210312
  Transmission Date: 20210420
  Serious: No
  Sender: FDA-Public Use
  Company Number: US-FARMAPROD-202012-1750

PATIENT
  Sex: Female

DRUGS (33)
  1. OXERVATE [Suspect]
     Active Substance: CENEGERMIN-BKBJ
     Indication: NEUROTROPHIC KERATOPATHY
     Route: 047
     Dates: start: 20201214
  2. MAGNESIUM OXIDE. [Concomitant]
     Active Substance: MAGNESIUM OXIDE
  3. AMLODIPINE BESYLATE/BENAZEPRIL [Concomitant]
  4. GAS RELIEF [Concomitant]
     Active Substance: DIMETHICONE
  5. VITAMIN D2 [Concomitant]
     Active Substance: ERGOCALCIFEROL
  6. LEVOTHYROXINE. [Concomitant]
     Active Substance: LEVOTHYROXINE
  7. ASPIRINE [Concomitant]
     Active Substance: ASPIRIN
  8. BRIMONIDINE TARTRATE. [Concomitant]
     Active Substance: BRIMONIDINE TARTRATE
  9. SERTRALINE HCL [Concomitant]
     Active Substance: SERTRALINE HYDROCHLORIDE
  10. MULTIVITAMIN DAILY TABLET [Concomitant]
  11. LORAZEPAM. [Concomitant]
     Active Substance: LORAZEPAM
  12. LIDOCAINE/PRILOCAINE [Concomitant]
     Active Substance: LIDOCAINE\PRILOCAINE
     Dosage: PACKET
  13. GABAPENTIN. [Concomitant]
     Active Substance: GABAPENTIN
  14. VIMPAT [Concomitant]
     Active Substance: LACOSAMIDE
  15. SOTALOL. [Concomitant]
     Active Substance: SOTALOL
  16. PROBIOTIC/ACIDOPHILUS [Concomitant]
  17. VASCEPA [Concomitant]
     Active Substance: ICOSAPENT ETHYL
  18. TOPIRAMATE. [Concomitant]
     Active Substance: TOPIRAMATE
  19. MOXIFLOXACIN. [Concomitant]
     Active Substance: MOXIFLOXACIN
  20. GABAPENTIN. [Concomitant]
     Active Substance: GABAPENTIN
  21. SODIUM BICARBONATE. [Concomitant]
     Active Substance: SODIUM BICARBONATE
  22. KEPPRA [Concomitant]
     Active Substance: LEVETIRACETAM
  23. VITAMINE C [Concomitant]
     Active Substance: ASCORBIC ACID
  24. POTASSIUM CHLORIDE NORMAL SALINE [Concomitant]
  25. MIDODRINE HCL [Concomitant]
     Active Substance: MIDODRINE HYDROCHLORIDE
  26. LUMIGAN [Concomitant]
     Active Substance: BIMATOPROST
  27. FERROUS FUMARATE [Concomitant]
     Active Substance: FERROUS FUMARATE
     Dosage: 324(106) MG TABLET
  28. ACETAMINOPHEN. [Concomitant]
     Active Substance: ACETAMINOPHEN
  29. LOVASTATIN. [Concomitant]
     Active Substance: LOVASTATIN
  30. RESTASIS [Concomitant]
     Active Substance: CYCLOSPORINE
  31. HYDRALAZINE HCL [Concomitant]
     Active Substance: HYDRALAZINE HYDROCHLORIDE
  32. DIGOXIN. [Concomitant]
     Active Substance: DIGOXIN
  33. CALCIUM/VITAMIN D K [Concomitant]

REACTIONS (1)
  - Wrong technique in product usage process [Unknown]
